FAERS Safety Report 17644394 (Version 1)
Quarter: 2020Q2

REPORT INFORMATION
  Report Type: Report from Study
  Country: None (occurrence: US)
  Receive Date: 20200408
  Receipt Date: 20200408
  Transmission Date: 20200713
  Serious: No
  Sender: FDA-Public Use
  Company Number: US-BIOVITRUM-2019US2953

PATIENT
  Sex: Female

DRUGS (1)
  1. KINERET [Suspect]
     Active Substance: ANAKINRA
     Indication: PYREXIA
     Route: 058
     Dates: start: 20190827

REACTIONS (10)
  - Vaginal infection [Unknown]
  - Abdominal pain upper [Unknown]
  - Off label use [Unknown]
  - Pyrexia [Unknown]
  - Back pain [Unknown]
  - Pain [Unknown]
  - Injection site pain [Unknown]
  - Gait inability [Unknown]
  - Swelling [Unknown]
  - Injection site warmth [Unknown]
